FAERS Safety Report 13773050 (Version 2)
Quarter: 2017Q3

REPORT INFORMATION
  Report Type: Report from Study
  Country: CA (occurrence: CA)
  Receive Date: 20170720
  Receipt Date: 20170919
  Transmission Date: 20171127
  Serious: Yes (Other)
  Sender: FDA-Public Use
  Company Number: CA-AMGEN-CANSL2017106240

PATIENT
  Age: 85 Year
  Sex: Female
  Weight: 48.53 kg

DRUGS (3)
  1. VITAMIN D [Concomitant]
     Active Substance: CHOLECALCIFEROL
     Indication: OSTEOPOROSIS
     Dosage: 10000 UNIT, QWK
     Dates: start: 2014
  2. PROLIA [Suspect]
     Active Substance: DENOSUMAB
     Indication: OSTEOPOROSIS POSTMENOPAUSAL
     Dosage: 60 MG, Q6MO
     Route: 058
     Dates: start: 20140411
  3. CALTRATE [Concomitant]
     Active Substance: CALCIUM CARBONATE
     Indication: OSTEOPOROSIS
     Dosage: 500 UNK, QD
     Dates: start: 2010

REACTIONS (9)
  - Tendonitis [Recovering/Resolving]
  - Bursitis [Recovering/Resolving]
  - Gastric disorder [Recovered/Resolved]
  - Pain [Unknown]
  - Diarrhoea [Unknown]
  - Ankle fracture [Unknown]
  - Coccydynia [Unknown]
  - Hypertension [Unknown]
  - Urinary tract infection [Unknown]

NARRATIVE: CASE EVENT DATE: 201703
